FAERS Safety Report 15152857 (Version 2)
Quarter: 2018Q3

REPORT INFORMATION
  Report Type: Spontaneous
  Country: GB (occurrence: GB)
  Receive Date: 20180717
  Receipt Date: 20180917
  Transmission Date: 20181010
  Serious: Yes (Hospitalization)
  Sender: FDA-Public Use
  Company Number: GB-TEVA-2018-GB-927945

PATIENT
  Age: 75 Year
  Sex: Male
  Weight: 84 kg

DRUGS (11)
  1. DOCUSATE SODIUM. [Concomitant]
     Active Substance: DOCUSATE SODIUM
     Indication: CONSTIPATION
     Dosage: 4 DOSAGE FORMS DAILY;
     Dates: start: 20180515
  2. CO?CARELDOPA [Concomitant]
     Active Substance: CARBIDOPA\LEVODOPA
     Dosage: 8 DOSAGE FORMS DAILY;
     Dates: start: 20141114
  3. SINEMET [Concomitant]
     Active Substance: CARBIDOPA\LEVODOPA
     Dosage: AT 9:30PM (BEFORE BED)
     Dates: start: 20160226
  4. CO?AMILOFRUSE [Concomitant]
     Active Substance: AMILORIDE\FUROSEMIDE
     Dosage: 1 DOSAGE FORMS DAILY; EACH MORNING
     Dates: start: 20180305
  5. CO?BENELDOPA [Concomitant]
     Active Substance: BENSERAZIDE HYDROCHLORIDE\LEVODOPA
     Dosage: 1 DOSAGE FORMS DAILY; AT 7:00AM
     Dates: start: 20170731
  6. ROPINIROLE. [Suspect]
     Active Substance: ROPINIROLE
     Route: 065
     Dates: start: 20180511
  7. IPINNIA XL [Concomitant]
     Dosage: 1 DOSAGE FORMS DAILY; N THE MORNING
     Dates: start: 20170120, end: 20180316
  8. CASSIA [Concomitant]
     Indication: CONSTIPATION
     Dosage: 2 DOSAGE FORMS DAILY; AT NIGHT
     Dates: start: 20180515
  9. ROPINIROLE. [Suspect]
     Active Substance: ROPINIROLE
     Route: 065
     Dates: start: 20180329, end: 201806
  10. AMITRIPTYLINE HYDROCHLORIDE. [Concomitant]
     Active Substance: AMITRIPTYLINE HYDROCHLORIDE
     Dosage: 2 DOSAGE FORMS DAILY; AT NIGHT TO HELP SLEEP
     Dates: start: 20170724, end: 20180615
  11. RATIOPHARM GMBH SPIROCO PROLONGED RELEASE [Concomitant]
     Dosage: 1 DOSAGE FORMS DAILY; IN THE MORNING
     Dates: start: 20180316, end: 20180529

REACTIONS (1)
  - Acute psychosis [Recovered/Resolved]

NARRATIVE: CASE EVENT DATE: 20180519
